FAERS Safety Report 11528637 (Version 1)
Quarter: 2015Q3

REPORT INFORMATION
  Report Type: Spontaneous
  Country: AU (occurrence: AU)
  Receive Date: 20150921
  Receipt Date: 20150921
  Transmission Date: 20151125
  Serious: Yes (Other)
  Sender: FDA-Public Use
  Company Number: AU-ROCHE-1635356

PATIENT

DRUGS (2)
  1. WARFARIN [Concomitant]
     Active Substance: WARFARIN
  2. XELODA [Suspect]
     Active Substance: CAPECITABINE
     Indication: MALIGNANT MELANOMA
     Route: 065

REACTIONS (3)
  - Off label use [Unknown]
  - Anticoagulation drug level abnormal [Unknown]
  - Fatigue [Unknown]
